FAERS Safety Report 4478553-7 (Version None)
Quarter: 2004Q4

REPORT INFORMATION
  Report Type: 
  Country: None (occurrence: None)
  Receive Date: 20041014
  Receipt Date: 20041001
  Transmission Date: 20050328
  Serious: Yes (Death, Life-Threatening, Other)
  Sender: FDA-Public Use
  Company Number: HQ2401321MAY2002

PATIENT
  Age: 75 Year
  Sex: Female
  Weight: 90 kg

DRUGS (8)
  1. MYLOTARG [Suspect]
     Indication: ACUTE MYELOID LEUKAEMIA
     Dosage: 17 MG ONE TIME PER ONE DOSE, INTRAVENOUS
     Route: 042
  2. INSULIN HUMULIN 70/30 (INSULIN HUMAN/INSULIN HUMAN INJECTION, ISOPHANE [Concomitant]
  3. LASIX [Concomitant]
  4. K-DUR 10 [Concomitant]
  5. LOPRESSOR [Concomitant]
  6. SYNTHROID [Concomitant]
  7. PREMARIN [Concomitant]
  8. GLIPIZIDE [Concomitant]

REACTIONS (9)
  - CARDIO-RESPIRATORY ARREST [None]
  - DYSPNOEA [None]
  - FLUID OVERLOAD [None]
  - HYPOGLYCAEMIA [None]
  - HYPOTENSION [None]
  - HYPOXIA [None]
  - PARALYSIS FLACCID [None]
  - PYREXIA [None]
  - TACHYPNOEA [None]
